FAERS Safety Report 20622337 (Version 2)
Quarter: 2022Q2

REPORT INFORMATION
  Report Type: Spontaneous
  Country: US (occurrence: US)
  Receive Date: 20220322
  Receipt Date: 20220620
  Transmission Date: 20220721
  Serious: No
  Sender: FDA-Public Use
  Company Number: US-NOVOPROD-896854

PATIENT
  Age: 42 Year
  Sex: Male

DRUGS (1)
  1. WEGOVY [Suspect]
     Active Substance: SEMAGLUTIDE
     Indication: Weight decreased
     Dosage: 0.25 MG, QW
     Route: 058
     Dates: start: 20220211

REACTIONS (4)
  - Injection site haemorrhage [Unknown]
  - Injection site extravasation [Unknown]
  - Device malfunction [Unknown]
  - Product communication issue [Unknown]

NARRATIVE: CASE EVENT DATE: 20220201
